FAERS Safety Report 5266593-X (Version None)
Quarter: 2007Q1

REPORT INFORMATION
  Report Type: 
  Country: None (occurrence: None)
  Receive Date: 20070315
  Receipt Date: 20070305
  Transmission Date: 20070707
  Serious: Yes (Death)
  Sender: FDA-Public Use
  Company Number: KR-PFIZER INC-2007010497

PATIENT
  Sex: Female
  Weight: 53 kg

DRUGS (2)
  1. ZYVOX [Suspect]
     Indication: ENTEROCOCCAL INFECTION
     Route: 042
     Dates: start: 20060601, end: 20060603
  2. CILASTATIN SODIUM W/IMIPENEM [Concomitant]
     Dosage: DAILY DOSE:2GRAM
     Route: 042
     Dates: start: 20060516, end: 20060603

REACTIONS (1)
  - SEPSIS [None]
